FAERS Safety Report 24930063 (Version 2)
Quarter: 2025Q1

REPORT INFORMATION
  Report Type: Spontaneous
  Country: CA (occurrence: CA)
  Receive Date: 20250205
  Receipt Date: 20250306
  Transmission Date: 20250409
  Serious: Yes (Death, Other)
  Sender: BRISTOL-MYERS SQUIBB COMPANY
  Company Number: CA-BRISTOL-MYERS SQUIBB COMPANY-2025-017474

PATIENT
  Age: 40 Year
  Sex: Female
  Weight: 95 kg

DRUGS (403)
  1. TRIAMCINOLONE ACETONIDE [Suspect]
     Active Substance: TRIAMCINOLONE ACETONIDE
     Indication: Product used for unknown indication
  2. ORENCIA [Suspect]
     Active Substance: ABATACEPT
     Indication: Rheumatoid arthritis
  3. ORENCIA [Suspect]
     Active Substance: ABATACEPT
  4. ORENCIA [Suspect]
     Active Substance: ABATACEPT
  5. ORENCIA [Suspect]
     Active Substance: ABATACEPT
  6. ORENCIA [Suspect]
     Active Substance: ABATACEPT
     Indication: Rheumatoid arthritis
     Route: 040
  7. ORENCIA [Suspect]
     Active Substance: ABATACEPT
     Route: 040
  8. ORENCIA [Suspect]
     Active Substance: ABATACEPT
     Indication: Rheumatoid arthritis
     Route: 058
  9. ORENCIA [Suspect]
     Active Substance: ABATACEPT
     Route: 058
  10. METFORMIN HYDROCHLORIDE [Concomitant]
     Active Substance: METFORMIN HYDROCHLORIDE
     Indication: Product used for unknown indication
     Route: 040
  11. DICLOFENAC SODIUM [Concomitant]
     Active Substance: DICLOFENAC SODIUM
     Indication: Product used for unknown indication
  12. DICLOFENAC SODIUM [Concomitant]
     Active Substance: DICLOFENAC SODIUM
  13. DICLOFENAC SODIUM [Concomitant]
     Active Substance: DICLOFENAC SODIUM
  14. DICLOFENAC SODIUM [Concomitant]
     Active Substance: DICLOFENAC SODIUM
     Route: 058
  15. VITAMIN C [Concomitant]
     Active Substance: ASCORBIC ACID
     Indication: Product used for unknown indication
  16. ACETAMINOPHEN [Concomitant]
     Active Substance: ACETAMINOPHEN
     Indication: Product used for unknown indication
  17. ALENDRONATE SODIUM [Concomitant]
     Active Substance: ALENDRONATE SODIUM
     Indication: Rheumatoid arthritis
  18. ALENDRONATE SODIUM [Concomitant]
     Active Substance: ALENDRONATE SODIUM
     Route: 048
  19. ALENDRONATE SODIUM [Concomitant]
     Active Substance: ALENDRONATE SODIUM
     Route: 016
  20. DICLOFENAC SODIUM [Concomitant]
     Active Substance: DICLOFENAC SODIUM
     Indication: Product used for unknown indication
  21. LEFLUNOMIDE [Concomitant]
     Active Substance: LEFLUNOMIDE
     Indication: Rheumatoid arthritis
  22. LEFLUNOMIDE [Concomitant]
     Active Substance: LEFLUNOMIDE
  23. LEFLUNOMIDE [Concomitant]
     Active Substance: LEFLUNOMIDE
  24. LEFLUNOMIDE [Concomitant]
     Active Substance: LEFLUNOMIDE
     Route: 048
  25. LEFLUNOMIDE [Concomitant]
     Active Substance: LEFLUNOMIDE
     Route: 048
  26. LEFLUNOMIDE [Concomitant]
     Active Substance: LEFLUNOMIDE
     Route: 048
  27. LEFLUNOMIDE [Concomitant]
     Active Substance: LEFLUNOMIDE
     Route: 048
  28. LEFLUNOMIDE [Concomitant]
     Active Substance: LEFLUNOMIDE
     Route: 048
  29. LEFLUNOMIDE [Concomitant]
     Active Substance: LEFLUNOMIDE
     Route: 048
  30. AZATHIOPRINE [Concomitant]
     Active Substance: AZATHIOPRINE
     Indication: Product used for unknown indication
  31. BERINERT [Concomitant]
     Active Substance: HUMAN C1-ESTERASE INHIBITOR
     Indication: Product used for unknown indication
  32. BOTULINUM TOXIN TYPE A [Concomitant]
     Active Substance: BOTULINUM TOXIN TYPE A
     Indication: Product used for unknown indication
  33. BUTRANS [Concomitant]
     Active Substance: BUPRENORPHINE
     Indication: Product used for unknown indication
  34. CELEBREX [Concomitant]
     Active Substance: CELECOXIB
     Indication: Product used for unknown indication
  35. CELEBREX [Concomitant]
     Active Substance: CELECOXIB
     Route: 048
  36. CELECOXIB [Concomitant]
     Active Substance: CELECOXIB
     Indication: Product used for unknown indication
  37. CELECOXIB [Concomitant]
     Active Substance: CELECOXIB
     Route: 048
  38. CETIRIZINE [Concomitant]
     Active Substance: CETIRIZINE HYDROCHLORIDE
     Indication: Rheumatoid arthritis
  39. CETIRIZINE [Concomitant]
     Active Substance: CETIRIZINE HYDROCHLORIDE
  40. CETIRIZINE [Concomitant]
     Active Substance: CETIRIZINE HYDROCHLORIDE
  41. CHLORHEXIDINE GLUCONATE [Concomitant]
     Active Substance: CHLORHEXIDINE GLUCONATE
     Indication: Product used for unknown indication
  42. CHLORHEXIDINE GLUCONATE [Concomitant]
     Active Substance: CHLORHEXIDINE GLUCONATE
     Route: 061
  43. CHOLECALCIFEROL [Concomitant]
     Active Substance: CHOLECALCIFEROL
     Indication: Product used for unknown indication
  44. CORTISONE [Concomitant]
     Active Substance: CORTISONE
     Indication: Product used for unknown indication
  45. CORTISONE (HYDROCORTISONE) [Concomitant]
     Active Substance: HYDROCORTISONE
     Indication: Rheumatoid arthritis
     Route: 058
  46. CORTISONE (HYDROCORTISONE) [Concomitant]
     Active Substance: HYDROCORTISONE
  47. COSENTYX [Concomitant]
     Active Substance: SECUKINUMAB
     Indication: Psoriatic arthropathy
  48. COSENTYX [Concomitant]
     Active Substance: SECUKINUMAB
     Indication: Rheumatoid arthritis
     Route: 005
  49. COSENTYX [Concomitant]
     Active Substance: SECUKINUMAB
  50. DICLOFENAC DIETHYLAMINE [Concomitant]
     Active Substance: DICLOFENAC DIETHYLAMINE
     Indication: Product used for unknown indication
  51. DICLOFENAC POTASSIUM [Concomitant]
     Active Substance: DICLOFENAC POTASSIUM
     Indication: Product used for unknown indication
  52. ENBREL [Concomitant]
     Active Substance: ETANERCEPT
     Indication: Product used for unknown indication
  53. ENBREL [Concomitant]
     Active Substance: ETANERCEPT
  54. ENBREL [Concomitant]
     Active Substance: ETANERCEPT
     Route: 058
  55. ENBREL [Concomitant]
     Active Substance: ETANERCEPT
     Route: 058
  56. ENBREL [Concomitant]
     Active Substance: ETANERCEPT
     Route: 058
  57. ENBREL [Concomitant]
     Active Substance: ETANERCEPT
  58. ENBREL [Concomitant]
     Active Substance: ETANERCEPT
  59. ENBREL [Concomitant]
     Active Substance: ETANERCEPT
     Route: 058
  60. ENBREL [Concomitant]
     Active Substance: ETANERCEPT
  61. ERELZI [Concomitant]
     Active Substance: ETANERCEPT-SZZS
     Indication: Product used for unknown indication
  62. ERELZI [Concomitant]
     Active Substance: ETANERCEPT-SZZS
  63. ERELZI [Concomitant]
     Active Substance: ETANERCEPT-SZZS
     Route: 058
  64. ERELZI [Concomitant]
     Active Substance: ETANERCEPT-SZZS
  65. ERENUMAB-AOOE [Concomitant]
     Active Substance: ERENUMAB-AOOE
     Indication: Product used for unknown indication
  66. ERGOCALCIFEROL [Concomitant]
     Active Substance: ERGOCALCIFEROL
     Indication: Product used for unknown indication
  67. ERGOCALCIFEROL [Concomitant]
     Active Substance: ERGOCALCIFEROL
  68. FLUMETHASONE [Concomitant]
     Active Substance: FLUMETHASONE
     Indication: Product used for unknown indication
  69. FLUMETHASONE PIVALATE [Concomitant]
     Active Substance: FLUMETHASONE PIVALATE
     Indication: Product used for unknown indication
  70. FLUMETHASONE PIVALATE [Concomitant]
     Active Substance: FLUMETHASONE PIVALATE
  71. FLUMETHASONE PIVALATE [Concomitant]
     Active Substance: FLUMETHASONE PIVALATE
  72. HAIR KERATIN AMINO ACIDS GOLD COMPLEX [Concomitant]
     Active Substance: HAIR KERATIN AMINO ACIDS GOLD COMPLEX
     Indication: Product used for unknown indication
  73. GOLIMUMAB [Concomitant]
     Active Substance: GOLIMUMAB
     Indication: Rheumatoid arthritis
  74. GOLIMUMAB [Concomitant]
     Active Substance: GOLIMUMAB
     Indication: Prostatic specific antigen
     Route: 058
  75. HYDROCORTISONE [Concomitant]
     Active Substance: HYDROCORTISONE
     Indication: Rheumatoid arthritis
  76. HYRIMOZ [Concomitant]
     Active Substance: ADALIMUMAB-ADAZ
     Indication: Product used for unknown indication
  77. INFLIXIMAB [Concomitant]
     Active Substance: INFLIXIMAB
     Indication: Rheumatoid arthritis
  78. INFLIXIMAB [Concomitant]
     Active Substance: INFLIXIMAB
     Route: 040
  79. INFLIXIMAB [Concomitant]
     Active Substance: INFLIXIMAB
     Route: 040
  80. INFLIXIMAB [Concomitant]
     Active Substance: INFLIXIMAB
     Route: 040
  81. KEVZARA [Concomitant]
     Active Substance: SARILUMAB
     Indication: Product used for unknown indication
  82. LAMICTAL [Concomitant]
     Active Substance: LAMOTRIGINE
     Indication: Product used for unknown indication
  83. LAMICTAL [Concomitant]
     Active Substance: LAMOTRIGINE
     Route: 048
  84. LAMICTAL [Concomitant]
     Active Substance: LAMOTRIGINE
     Route: 048
  85. LAMICTAL [Concomitant]
     Active Substance: LAMOTRIGINE
     Route: 048
  86. LAMICTAL [Concomitant]
     Active Substance: LAMOTRIGINE
     Route: 048
  87. LAMICTAL [Concomitant]
     Active Substance: LAMOTRIGINE
     Route: 048
  88. METHYLPREDNISOLONE [Concomitant]
     Active Substance: METHYLPREDNISOLONE
     Indication: Product used for unknown indication
  89. METHYLPREDNISOLONE SODIUM SUCCINATE [Concomitant]
     Active Substance: METHYLPREDNISOLONE SODIUM SUCCINATE
     Indication: Product used for unknown indication
  90. MYOCHRYSINE [Concomitant]
     Active Substance: GOLD SODIUM THIOMALATE
     Indication: Rheumatoid arthritis
     Route: 030
  91. MYRBETRIQ [Concomitant]
     Active Substance: MIRABEGRON
     Indication: Product used for unknown indication
     Dosage: TABLET (EXTENDED- RELEASE)
  92. MYRBETRIQ [Concomitant]
     Active Substance: MIRABEGRON
     Dosage: TABLET (EXTENDED- RELEASE)
  93. NAPROXEN [Concomitant]
     Active Substance: NAPROXEN
     Indication: Product used for unknown indication
  94. NAPROXEN SODIUM [Concomitant]
     Active Substance: NAPROXEN SODIUM
     Indication: Rheumatoid arthritis
  95. NUCALA [Concomitant]
     Active Substance: MEPOLIZUMAB
     Indication: Product used for unknown indication
  96. OXYCODONE TEREPHTHALATE [Concomitant]
     Active Substance: OXYCODONE TEREPHTHALATE
     Indication: Product used for unknown indication
  97. PERIOGARD [Concomitant]
     Active Substance: CHLORHEXIDINE GLUCONATE
     Indication: Product used for unknown indication
     Route: 002
  98. PHENYLEPHRINE HYDROCHLORIDE [Concomitant]
     Active Substance: PHENYLEPHRINE HYDROCHLORIDE
     Indication: Rheumatoid arthritis
  99. PREDNISONE [Concomitant]
     Active Substance: PREDNISONE
     Indication: Rheumatoid arthritis
     Route: 048
  100. PREDNISONE [Concomitant]
     Active Substance: PREDNISONE
  101. PREDNISONE [Concomitant]
     Active Substance: PREDNISONE
     Route: 048
  102. PREDNISONE [Concomitant]
     Active Substance: PREDNISONE
     Route: 048
  103. PREDNISONE [Concomitant]
     Active Substance: PREDNISONE
     Route: 048
  104. PREDNISONE [Concomitant]
     Active Substance: PREDNISONE
  105. PREDNISONE [Concomitant]
     Active Substance: PREDNISONE
  106. PREDNISONE [Concomitant]
     Active Substance: PREDNISONE
     Route: 048
  107. PREDNISONE [Concomitant]
     Active Substance: PREDNISONE
  108. PREDNISONE [Concomitant]
     Active Substance: PREDNISONE
  109. PREDNISONE [Concomitant]
     Active Substance: PREDNISONE
     Route: 048
  110. RAMIPRIL [Concomitant]
     Active Substance: RAMIPRIL
     Indication: Rheumatoid arthritis
  111. RAMIPRIL [Concomitant]
     Active Substance: RAMIPRIL
     Route: 040
  112. RAMIPRIL [Concomitant]
     Active Substance: RAMIPRIL
     Route: 016
  113. RANITIDINE HYDROCHLORIDE [Concomitant]
     Active Substance: RANITIDINE HYDROCHLORIDE
     Indication: Product used for unknown indication
  114. CETIRIZINE HYDROCHLORIDE\PSEUDOEPHEDRINE HYDROCHLORIDE [Concomitant]
     Active Substance: CETIRIZINE HYDROCHLORIDE\PSEUDOEPHEDRINE HYDROCHLORIDE
     Indication: Product used for unknown indication
  115. CETIRIZINE HYDROCHLORIDE\PSEUDOEPHEDRINE HYDROCHLORIDE [Concomitant]
     Active Substance: CETIRIZINE HYDROCHLORIDE\PSEUDOEPHEDRINE HYDROCHLORIDE
  116. CETIRIZINE HYDROCHLORIDE\PSEUDOEPHEDRINE HYDROCHLORIDE [Concomitant]
     Active Substance: CETIRIZINE HYDROCHLORIDE\PSEUDOEPHEDRINE HYDROCHLORIDE
  117. CETIRIZINE HYDROCHLORIDE\PSEUDOEPHEDRINE HYDROCHLORIDE [Concomitant]
     Active Substance: CETIRIZINE HYDROCHLORIDE\PSEUDOEPHEDRINE HYDROCHLORIDE
  118. CETIRIZINE HYDROCHLORIDE\PSEUDOEPHEDRINE HYDROCHLORIDE [Concomitant]
     Active Substance: CETIRIZINE HYDROCHLORIDE\PSEUDOEPHEDRINE HYDROCHLORIDE
     Route: 040
  119. RITUXIMAB [Concomitant]
     Active Substance: RITUXIMAB
     Indication: Rheumatoid arthritis
  120. RITUXIMAB [Concomitant]
     Active Substance: RITUXIMAB
  121. RITUXIMAB [Concomitant]
     Active Substance: RITUXIMAB
  122. RITUXIMAB [Concomitant]
     Active Substance: RITUXIMAB
  123. RITUXIMAB [Concomitant]
     Active Substance: RITUXIMAB
     Route: 016
  124. RITUXIMAB [Concomitant]
     Active Substance: RITUXIMAB
  125. RITUXIMAB [Concomitant]
     Active Substance: RITUXIMAB
  126. RITUXIMAB [Concomitant]
     Active Substance: RITUXIMAB
     Route: 043
  127. RITUXIMAB [Concomitant]
     Active Substance: RITUXIMAB
  128. RITUXIMAB [Concomitant]
     Active Substance: RITUXIMAB
  129. RITUXIMAB [Concomitant]
     Active Substance: RITUXIMAB
     Route: 042
  130. RITUXIMAB [Concomitant]
     Active Substance: RITUXIMAB
     Route: 016
  131. RITUXIMAB [Concomitant]
     Active Substance: RITUXIMAB
  132. RITUXIMAB [Concomitant]
     Active Substance: RITUXIMAB
     Route: 042
  133. RITUXIMAB [Concomitant]
     Active Substance: RITUXIMAB
  134. RITUXIMAB [Concomitant]
     Active Substance: RITUXIMAB
  135. RITUXIMAB [Concomitant]
     Active Substance: RITUXIMAB
     Route: 058
  136. RITUXIMAB [Concomitant]
     Active Substance: RITUXIMAB
     Route: 043
  137. RITUXIMAB [Concomitant]
     Active Substance: RITUXIMAB
     Route: 042
  138. RITUXIMAB [Concomitant]
     Active Substance: RITUXIMAB
  139. RITUXIMAB [Concomitant]
     Active Substance: RITUXIMAB
     Route: 042
  140. RITUXIMAB [Concomitant]
     Active Substance: RITUXIMAB
     Route: 058
  141. SULFASALAZINE [Concomitant]
     Active Substance: SULFASALAZINE
     Indication: Product used for unknown indication
  142. SULFASALAZINE [Concomitant]
     Active Substance: SULFASALAZINE
  143. APREMILAST [Concomitant]
     Active Substance: APREMILAST
     Indication: Product used for unknown indication
  144. APREMILAST [Concomitant]
     Active Substance: APREMILAST
  145. APREMILAST [Concomitant]
     Active Substance: APREMILAST
  146. DICLOFENAC SODIUM [Concomitant]
     Active Substance: DICLOFENAC SODIUM
     Indication: Rheumatoid arthritis
     Route: 058
  147. SIRUKUMAB [Concomitant]
     Active Substance: SIRUKUMAB
     Indication: Product used for unknown indication
  148. GOLD SODIUM THIOMALATE [Concomitant]
     Active Substance: GOLD SODIUM THIOMALATE
     Indication: Product used for unknown indication
  149. GOLD SODIUM THIOMALATE [Concomitant]
     Active Substance: GOLD SODIUM THIOMALATE
  150. GOLD SODIUM THIOMALATE [Concomitant]
     Active Substance: GOLD SODIUM THIOMALATE
  151. GOLD SODIUM THIOMALATE [Concomitant]
     Active Substance: GOLD SODIUM THIOMALATE
     Route: 048
  152. TOFACITINIB [Concomitant]
     Active Substance: TOFACITINIB
     Indication: Product used for unknown indication
  153. TOPIRAMATE [Concomitant]
     Active Substance: TOPIRAMATE
     Indication: Product used for unknown indication
  154. TOPIRAMATE [Concomitant]
     Active Substance: TOPIRAMATE
  155. TOPIRAMATE [Concomitant]
     Active Substance: TOPIRAMATE
  156. TOPIRAMATE [Concomitant]
     Active Substance: TOPIRAMATE
  157. TRAMADOL HYDROCHLORIDE [Concomitant]
     Active Substance: TRAMADOL HYDROCHLORIDE
     Indication: Product used for unknown indication
  158. USTEKINUMAB [Concomitant]
     Active Substance: USTEKINUMAB
     Indication: Rheumatoid arthritis
     Route: 058
  159. USTEKINUMAB [Concomitant]
     Active Substance: USTEKINUMAB
  160. USTEKINUMAB [Concomitant]
     Active Substance: USTEKINUMAB
     Route: 058
  161. VITAMIN D3 [Concomitant]
     Active Substance: CHOLECALCIFEROL
     Indication: Product used for unknown indication
  162. DICLOFENAC DIETHYLAMINE [Concomitant]
     Active Substance: DICLOFENAC DIETHYLAMINE
     Indication: Product used for unknown indication
  163. ACETAMINOPHEN AND CODEINE [Concomitant]
     Active Substance: ACETAMINOPHEN\CODEINE PHOSPHATE
     Indication: Product used for unknown indication
  164. ACTEMRA [Concomitant]
     Active Substance: TOCILIZUMAB
     Indication: Rheumatoid arthritis
  165. ACTEMRA [Concomitant]
     Active Substance: TOCILIZUMAB
  166. ACTEMRA [Concomitant]
     Active Substance: TOCILIZUMAB
     Route: 058
  167. ACTEMRA [Concomitant]
     Active Substance: TOCILIZUMAB
     Route: 058
  168. ACTEMRA [Concomitant]
     Active Substance: TOCILIZUMAB
     Route: 058
  169. ACTEMRA [Concomitant]
     Active Substance: TOCILIZUMAB
     Route: 058
  170. ACTEMRA [Concomitant]
     Active Substance: TOCILIZUMAB
     Route: 058
  171. ACTEMRA [Concomitant]
     Active Substance: TOCILIZUMAB
     Route: 058
  172. ACTEMRA [Concomitant]
     Active Substance: TOCILIZUMAB
     Route: 058
  173. ACTEMRA [Concomitant]
     Active Substance: TOCILIZUMAB
     Route: 040
  174. ACTEMRA [Concomitant]
     Active Substance: TOCILIZUMAB
     Route: 040
  175. ACTEMRA [Concomitant]
     Active Substance: TOCILIZUMAB
     Route: 040
  176. ACTEMRA [Concomitant]
     Active Substance: TOCILIZUMAB
     Route: 040
  177. ACTEMRA [Concomitant]
     Active Substance: TOCILIZUMAB
     Route: 040
  178. ACTEMRA [Concomitant]
     Active Substance: TOCILIZUMAB
     Route: 061
  179. ACTEMRA [Concomitant]
     Active Substance: TOCILIZUMAB
  180. ACTEMRA [Concomitant]
     Active Substance: TOCILIZUMAB
  181. ACTEMRA [Concomitant]
     Active Substance: TOCILIZUMAB
     Route: 058
  182. ACTEMRA [Concomitant]
     Active Substance: TOCILIZUMAB
     Route: 040
  183. ADALIMUMAB [Concomitant]
     Active Substance: ADALIMUMAB
     Indication: Rheumatoid arthritis
  184. ADALIMUMAB [Concomitant]
     Active Substance: ADALIMUMAB
  185. AIMOVIG [Concomitant]
     Active Substance: ERENUMAB-AOOE
     Indication: Migraine
  186. AIMOVIG [Concomitant]
     Active Substance: ERENUMAB-AOOE
  187. ALENDRONIC ACID [Concomitant]
     Active Substance: ALENDRONIC ACID
     Indication: Rheumatoid arthritis
     Route: 048
  188. ALENDRONIC ACID [Concomitant]
     Active Substance: ALENDRONIC ACID
  189. ALENDRONATE SODIUM\CHOLECALCIFEROL [Concomitant]
     Active Substance: ALENDRONATE SODIUM\CHOLECALCIFEROL
     Indication: Rheumatoid arthritis
  190. ARAVA [Concomitant]
     Active Substance: LEFLUNOMIDE
     Indication: Rheumatoid arthritis
     Route: 048
  191. ARAVA [Concomitant]
     Active Substance: LEFLUNOMIDE
     Route: 048
  192. ARAVA [Concomitant]
     Active Substance: LEFLUNOMIDE
     Route: 048
  193. ARAVA [Concomitant]
     Active Substance: LEFLUNOMIDE
  194. ARAVA [Concomitant]
     Active Substance: LEFLUNOMIDE
  195. ATOMOXETINE [Concomitant]
     Active Substance: ATOMOXETINE
     Indication: Migraine
  196. AZATHIOPRINE SODIUM [Concomitant]
     Active Substance: AZATHIOPRINE SODIUM
     Indication: Product used for unknown indication
  197. CALCIUM ASCORBATE [Concomitant]
     Active Substance: CALCIUM ASCORBATE
     Indication: Product used for unknown indication
  198. CALCIUM CARBONATE [Concomitant]
     Active Substance: CALCIUM CARBONATE
     Indication: Product used for unknown indication
  199. CALCIUM GLUBIONATE [Concomitant]
     Active Substance: CALCIUM GLUBIONATE
     Indication: Product used for unknown indication
     Route: 016
  200. CANDESARTAN [Concomitant]
     Active Substance: CANDESARTAN
     Indication: Migraine
     Route: 048
  201. CANDESARTAN [Concomitant]
     Active Substance: CANDESARTAN
     Route: 048
  202. CERTOLIZUMAB PEGOL [Concomitant]
     Active Substance: CERTOLIZUMAB PEGOL
     Indication: Product used for unknown indication
  203. CERTOLIZUMAB PEGOL [Concomitant]
     Active Substance: CERTOLIZUMAB PEGOL
     Route: 058
  204. CERTOLIZUMAB PEGOL [Concomitant]
     Active Substance: CERTOLIZUMAB PEGOL
  205. CERTOLIZUMAB PEGOL [Concomitant]
     Active Substance: CERTOLIZUMAB PEGOL
     Route: 058
  206. CERTOLIZUMAB PEGOL [Concomitant]
     Active Substance: CERTOLIZUMAB PEGOL
  207. CERTOLIZUMAB PEGOL [Concomitant]
     Active Substance: CERTOLIZUMAB PEGOL
     Route: 016
  208. CETIRIZINE HYDROCHLORIDE [Concomitant]
     Active Substance: CETIRIZINE HYDROCHLORIDE
     Indication: Rheumatoid arthritis
  209. CETIRIZINE HYDROCHLORIDE [Concomitant]
     Active Substance: CETIRIZINE HYDROCHLORIDE
  210. CETIRIZINE HYDROCHLORIDE [Concomitant]
     Active Substance: CETIRIZINE HYDROCHLORIDE
  211. CETIRIZINE HYDROCHLORIDE [Concomitant]
     Active Substance: CETIRIZINE HYDROCHLORIDE
     Route: 048
  212. CETIRIZINE HYDROCHLORIDE [Concomitant]
     Active Substance: CETIRIZINE HYDROCHLORIDE
  213. CETIRIZINE HYDROCHLORIDE [Concomitant]
     Active Substance: CETIRIZINE HYDROCHLORIDE
     Route: 048
  214. CIMZIA [Concomitant]
     Active Substance: CERTOLIZUMAB PEGOL
     Indication: Rheumatoid arthritis
     Route: 058
  215. CIMZIA [Concomitant]
     Active Substance: CERTOLIZUMAB PEGOL
     Indication: Psoriasis
     Route: 058
  216. CIMZIA [Concomitant]
     Active Substance: CERTOLIZUMAB PEGOL
  217. CIMZIA [Concomitant]
     Active Substance: CERTOLIZUMAB PEGOL
  218. CIMZIA [Concomitant]
     Active Substance: CERTOLIZUMAB PEGOL
  219. CIMZIA [Concomitant]
     Active Substance: CERTOLIZUMAB PEGOL
     Route: 058
  220. CORTISONE ACETATE [Concomitant]
     Active Substance: CORTISONE ACETATE
     Indication: Rheumatoid arthritis
     Route: 048
  221. CORTISONE ACETATE [Concomitant]
     Active Substance: CORTISONE ACETATE
  222. CORTISONE ACETATE [Concomitant]
     Active Substance: CORTISONE ACETATE
     Route: 061
  223. DESOGESTREL AND ETHINYL ESTRADIOL [Concomitant]
     Active Substance: DESOGESTREL\ETHINYL ESTRADIOL
     Indication: Product used for unknown indication
  224. DESOXIMETASONE [Concomitant]
     Active Substance: DESOXIMETASONE
     Indication: Rheumatoid arthritis
  225. DESOXIMETASONE [Concomitant]
     Active Substance: DESOXIMETASONE
  226. DESOXIMETASONE [Concomitant]
     Active Substance: DESOXIMETASONE
  227. DESOXIMETASONE [Concomitant]
     Active Substance: DESOXIMETASONE
     Route: 048
  228. DESOXIMETASONE [Concomitant]
     Active Substance: DESOXIMETASONE
     Route: 048
  229. DESOXIMETASONE [Concomitant]
     Active Substance: DESOXIMETASONE
     Route: 048
  230. DESOXIMETASONE [Concomitant]
     Active Substance: DESOXIMETASONE
     Route: 048
  231. DESOXIMETASONE [Concomitant]
     Active Substance: DESOXIMETASONE
     Route: 058
  232. DESOXIMETASONE [Concomitant]
     Active Substance: DESOXIMETASONE
     Route: 048
  233. DESOXIMETASONE [Concomitant]
     Active Substance: DESOXIMETASONE
     Route: 058
  234. DESOXIMETASONE [Concomitant]
     Active Substance: DESOXIMETASONE
  235. DESOXIMETASONE [Concomitant]
     Active Substance: DESOXIMETASONE
     Route: 048
  236. DOMPERIDONE MALEATE [Concomitant]
     Active Substance: DOMPERIDONE MALEATE
     Indication: Product used for unknown indication
  237. FOLIC ACID [Concomitant]
     Active Substance: FOLIC ACID
     Indication: Rheumatoid arthritis
  238. FOLIC ACID [Concomitant]
     Active Substance: FOLIC ACID
  239. FOLIC ACID [Concomitant]
     Active Substance: FOLIC ACID
  240. FOLIC ACID [Concomitant]
     Active Substance: FOLIC ACID
  241. FOLIC ACID [Concomitant]
     Active Substance: FOLIC ACID
  242. FOLIC ACID [Concomitant]
     Active Substance: FOLIC ACID
  243. FOLIC ACID [Concomitant]
     Active Substance: FOLIC ACID
  244. FOLIC ACID [Concomitant]
     Active Substance: FOLIC ACID
     Route: 048
  245. FOLIC ACID [Concomitant]
     Active Substance: FOLIC ACID
     Route: 048
  246. FOLIC ACID [Concomitant]
     Active Substance: FOLIC ACID
     Route: 048
  247. FOLIC ACID [Concomitant]
     Active Substance: FOLIC ACID
  248. FOLIC ACID [Concomitant]
     Active Substance: FOLIC ACID
  249. FOLIC ACID [Concomitant]
     Active Substance: FOLIC ACID
     Route: 048
  250. FOSAMAX [Concomitant]
     Active Substance: ALENDRONATE SODIUM
     Indication: Rheumatoid arthritis
  251. FOSAMAX [Concomitant]
     Active Substance: ALENDRONATE SODIUM
     Route: 016
  252. FOSAMAX [Concomitant]
     Active Substance: ALENDRONATE SODIUM
     Route: 048
  253. FOSAMAX [Concomitant]
     Active Substance: ALENDRONATE SODIUM
  254. FOSAMAX [Concomitant]
     Active Substance: ALENDRONATE SODIUM
     Route: 058
  255. GOLD [Concomitant]
     Active Substance: GOLD
     Indication: Product used for unknown indication
  256. GOLD SODIUM THIOMALATE [Concomitant]
     Active Substance: GOLD SODIUM THIOMALATE
     Indication: Product used for unknown indication
  257. GOLD SODIUM THIOMALATE [Concomitant]
     Active Substance: GOLD SODIUM THIOMALATE
  258. HUMIRA [Concomitant]
     Active Substance: ADALIMUMAB
     Indication: Rheumatoid arthritis
  259. HUMIRA [Concomitant]
     Active Substance: ADALIMUMAB
     Route: 058
  260. HUMIRA [Concomitant]
     Active Substance: ADALIMUMAB
     Route: 058
  261. HUMIRA [Concomitant]
     Active Substance: ADALIMUMAB
     Route: 058
  262. HUMIRA [Concomitant]
     Active Substance: ADALIMUMAB
  263. HUMIRA [Concomitant]
     Active Substance: ADALIMUMAB
     Route: 058
  264. HYDROXYCHLOROQUINE [Concomitant]
     Active Substance: HYDROXYCHLOROQUINE
     Indication: Rheumatoid arthritis
     Route: 048
  265. HYDROXYCHLOROQUINE [Concomitant]
     Active Substance: HYDROXYCHLOROQUINE
     Route: 048
  266. HYDROXYCHLOROQUINE [Concomitant]
     Active Substance: HYDROXYCHLOROQUINE
     Route: 048
  267. HYDROXYCHLOROQUINE [Concomitant]
     Active Substance: HYDROXYCHLOROQUINE
  268. HYDROXYCHLOROQUINE [Concomitant]
     Active Substance: HYDROXYCHLOROQUINE
  269. HYDROXYCHLOROQUINE [Concomitant]
     Active Substance: HYDROXYCHLOROQUINE
  270. HYDROXYCHLOROQUINE [Concomitant]
     Active Substance: HYDROXYCHLOROQUINE
  271. HYDROXYCHLOROQUINE [Concomitant]
     Active Substance: HYDROXYCHLOROQUINE
     Route: 058
  272. HYDROXYCHLOROQUINE [Concomitant]
     Active Substance: HYDROXYCHLOROQUINE
     Route: 058
  273. HYDROXYCHLOROQUINE [Concomitant]
     Active Substance: HYDROXYCHLOROQUINE
     Route: 016
  274. HYDROXYCHLOROQUINE [Concomitant]
     Active Substance: HYDROXYCHLOROQUINE
  275. HYDROXYCHLOROQUINE SULFATE [Concomitant]
     Active Substance: HYDROXYCHLOROQUINE SULFATE
     Indication: Rheumatoid arthritis
  276. HYDROXYCHLOROQUINE SULFATE [Concomitant]
     Active Substance: HYDROXYCHLOROQUINE SULFATE
  277. HYDROXYCHLOROQUINE SULFATE [Concomitant]
     Active Substance: HYDROXYCHLOROQUINE SULFATE
  278. HYDROXYCHLOROQUINE SULFATE [Concomitant]
     Active Substance: HYDROXYCHLOROQUINE SULFATE
  279. HYDROXYCHLOROQUINE SULFATE [Concomitant]
     Active Substance: HYDROXYCHLOROQUINE SULFATE
  280. HYDROXYCHLOROQUINE SULFATE [Concomitant]
     Active Substance: HYDROXYCHLOROQUINE SULFATE
     Route: 048
  281. HYDROXYCHLOROQUINE SULFATE [Concomitant]
     Active Substance: HYDROXYCHLOROQUINE SULFATE
     Route: 048
  282. HYDROXYCHLOROQUINE SULFATE [Concomitant]
     Active Substance: HYDROXYCHLOROQUINE SULFATE
  283. LEFLUNOMIDE [Concomitant]
     Active Substance: LEFLUNOMIDE
     Indication: Rheumatoid arthritis
  284. LEFLUNOMIDE [Concomitant]
     Active Substance: LEFLUNOMIDE
  285. LEFLUNOMIDE [Concomitant]
     Active Substance: LEFLUNOMIDE
  286. LEFLUNOMIDE [Concomitant]
     Active Substance: LEFLUNOMIDE
     Route: 048
  287. LEFLUNOMIDE [Concomitant]
     Active Substance: LEFLUNOMIDE
  288. LEFLUNOMIDE [Concomitant]
     Active Substance: LEFLUNOMIDE
     Route: 048
  289. METHOTREXATE [Concomitant]
     Active Substance: METHOTREXATE
     Route: 048
  290. METHOTREXATE [Concomitant]
     Active Substance: METHOTREXATE
     Route: 048
  291. METHOTREXATE [Concomitant]
     Active Substance: METHOTREXATE
     Route: 048
  292. METHOTREXATE [Concomitant]
     Active Substance: METHOTREXATE
     Route: 048
  293. METHOTREXATE [Concomitant]
     Active Substance: METHOTREXATE
     Route: 048
  294. METHOTREXATE [Concomitant]
     Active Substance: METHOTREXATE
     Route: 013
  295. METHOTREXATE [Concomitant]
     Active Substance: METHOTREXATE
     Route: 058
  296. METHOTREXATE [Concomitant]
     Active Substance: METHOTREXATE
     Route: 048
  297. METHOTREXATE [Concomitant]
     Active Substance: METHOTREXATE
     Route: 013
  298. METHOTREXATE [Concomitant]
     Active Substance: METHOTREXATE
  299. METHOTREXATE [Concomitant]
     Active Substance: METHOTREXATE
     Route: 048
  300. METHOTREXATE [Concomitant]
     Active Substance: METHOTREXATE
     Route: 048
  301. METHOTREXATE [Concomitant]
     Active Substance: METHOTREXATE
     Route: 058
  302. METHOTREXATE [Concomitant]
     Active Substance: METHOTREXATE
  303. METHOTREXATE [Concomitant]
     Active Substance: METHOTREXATE
  304. METHOTREXATE [Concomitant]
     Active Substance: METHOTREXATE
     Route: 013
  305. METHOTREXATE [Concomitant]
     Active Substance: METHOTREXATE
     Route: 048
  306. METHOTREXATE [Concomitant]
     Active Substance: METHOTREXATE
     Route: 016
  307. METHOTREXATE [Concomitant]
     Active Substance: METHOTREXATE
     Route: 058
  308. METHOTREXATE [Concomitant]
     Active Substance: METHOTREXATE
     Route: 048
  309. MINOCYCLINE [Concomitant]
     Active Substance: MINOCYCLINE HYDROCHLORIDE
     Indication: Rheumatoid arthritis
  310. MINOCYCLINE [Concomitant]
     Active Substance: MINOCYCLINE HYDROCHLORIDE
  311. MINOCYCLINE HYDROCHLORIDE [Concomitant]
     Active Substance: MINOCYCLINE HYDROCHLORIDE
     Indication: Product used for unknown indication
  312. NAPROXEN [Concomitant]
     Active Substance: NAPROXEN
     Indication: Product used for unknown indication
  313. NAPROXEN [Concomitant]
     Active Substance: NAPROXEN
  314. NAPROXEN [Concomitant]
     Active Substance: NAPROXEN
  315. NAPROXEN [Concomitant]
     Active Substance: NAPROXEN
  316. NAPROXEN [Concomitant]
     Active Substance: NAPROXEN
  317. NAPROXEN [Concomitant]
     Active Substance: NAPROXEN
  318. NAPROXEN [Concomitant]
     Active Substance: NAPROXEN
  319. NAPROXEN [Concomitant]
     Active Substance: NAPROXEN
  320. NAPROXEN [Concomitant]
     Active Substance: NAPROXEN
  321. NAPROXEN [Concomitant]
     Active Substance: NAPROXEN
  322. NAPROXEN [Concomitant]
     Active Substance: NAPROXEN
  323. NAPROXEN [Concomitant]
     Active Substance: NAPROXEN
  324. NAPROXEN [Concomitant]
     Active Substance: NAPROXEN
  325. NAPROXEN [Concomitant]
     Active Substance: NAPROXEN
  326. NAPROXEN [Concomitant]
     Active Substance: NAPROXEN
  327. OTEZLA [Concomitant]
     Active Substance: APREMILAST
     Indication: Product used for unknown indication
  328. OXYCODONE [Concomitant]
     Active Substance: OXYCODONE
     Indication: Product used for unknown indication
  329. PHTHALYLSULFATHIAZOLE [Concomitant]
     Active Substance: PHTHALYLSULFATHIAZOLE
     Indication: Rheumatoid arthritis
  330. PHTHALYLSULFATHIAZOLE [Concomitant]
     Active Substance: PHTHALYLSULFATHIAZOLE
  331. PHTHALYLSULFATHIAZOLE [Concomitant]
     Active Substance: PHTHALYLSULFATHIAZOLE
  332. PHTHALYLSULFATHIAZOLE [Concomitant]
     Active Substance: PHTHALYLSULFATHIAZOLE
     Route: 048
  333. PHTHALYLSULFATHIAZOLE [Concomitant]
     Active Substance: PHTHALYLSULFATHIAZOLE
     Route: 048
  334. PHTHALYLSULFATHIAZOLE [Concomitant]
     Active Substance: PHTHALYLSULFATHIAZOLE
  335. PHTHALYLSULFATHIAZOLE [Concomitant]
     Active Substance: PHTHALYLSULFATHIAZOLE
  336. PHTHALYLSULFATHIAZOLE [Concomitant]
     Active Substance: PHTHALYLSULFATHIAZOLE
     Route: 048
  337. PHTHALYLSULFATHIAZOLE [Concomitant]
     Active Substance: PHTHALYLSULFATHIAZOLE
     Route: 040
  338. PHTHALYLSULFATHIAZOLE [Concomitant]
     Active Substance: PHTHALYLSULFATHIAZOLE
  339. PHTHALYLSULFATHIAZOLE [Concomitant]
     Active Substance: PHTHALYLSULFATHIAZOLE
     Route: 040
  340. PHTHALYLSULFATHIAZOLE [Concomitant]
     Active Substance: PHTHALYLSULFATHIAZOLE
     Route: 058
  341. HYDROXYCHLOROQUINE DIPHOSPHATE [Concomitant]
     Active Substance: HYDROXYCHLOROQUINE DIPHOSPHATE
     Indication: Rheumatoid arthritis
  342. PSEUDOEPHEDRINE HYDROCHLORIDE [Concomitant]
     Active Substance: PSEUDOEPHEDRINE HYDROCHLORIDE
     Indication: Rheumatoid arthritis
  343. PSEUDOEPHEDRINE HYDROCHLORIDE [Concomitant]
     Active Substance: PSEUDOEPHEDRINE HYDROCHLORIDE
  344. PSEUDOEPHEDRINE HYDROCHLORIDE [Concomitant]
     Active Substance: PSEUDOEPHEDRINE HYDROCHLORIDE
  345. PSEUDOEPHEDRINE HYDROCHLORIDE [Concomitant]
     Active Substance: PSEUDOEPHEDRINE HYDROCHLORIDE
  346. RANITIDINE [Concomitant]
     Active Substance: RANITIDINE
     Indication: Product used for unknown indication
  347. REMICADE [Concomitant]
     Active Substance: INFLIXIMAB
     Indication: Rheumatoid arthritis
     Route: 040
  348. REMICADE [Concomitant]
     Active Substance: INFLIXIMAB
     Route: 040
  349. REMICADE [Concomitant]
     Active Substance: INFLIXIMAB
     Route: 040
  350. REMICADE [Concomitant]
     Active Substance: INFLIXIMAB
     Route: 040
  351. REMICADE [Concomitant]
     Active Substance: INFLIXIMAB
     Route: 058
  352. REMICADE [Concomitant]
     Active Substance: INFLIXIMAB
     Route: 040
  353. REMICADE [Concomitant]
     Active Substance: INFLIXIMAB
  354. SIMPONI [Concomitant]
     Active Substance: GOLIMUMAB
     Indication: Rheumatoid arthritis
     Route: 058
  355. SIMPONI [Concomitant]
     Active Substance: GOLIMUMAB
  356. SIMPONI [Concomitant]
     Active Substance: GOLIMUMAB
     Route: 058
  357. SIMPONI [Concomitant]
     Active Substance: GOLIMUMAB
  358. STELARA [Concomitant]
     Active Substance: USTEKINUMAB
     Indication: Rheumatoid arthritis
  359. STELARA [Concomitant]
     Active Substance: USTEKINUMAB
     Route: 058
  360. SULFASALAZINE [Concomitant]
     Active Substance: SULFASALAZINE
     Route: 058
  361. SULFASALAZINE [Concomitant]
     Active Substance: SULFASALAZINE
     Route: 048
  362. SULFASALAZINE [Concomitant]
     Active Substance: SULFASALAZINE
     Route: 048
  363. SULFASALAZINE [Concomitant]
     Active Substance: SULFASALAZINE
     Route: 048
  364. SULFASALAZINE [Concomitant]
     Active Substance: SULFASALAZINE
     Route: 058
  365. SULFASALAZINE [Concomitant]
     Active Substance: SULFASALAZINE
     Route: 048
  366. SULFASALAZINE [Concomitant]
     Active Substance: SULFASALAZINE
     Route: 048
  367. SULFASALAZINE [Concomitant]
     Active Substance: SULFASALAZINE
     Route: 058
  368. SULFASALAZINE [Concomitant]
     Active Substance: SULFASALAZINE
     Route: 058
  369. SULFASALAZINE [Concomitant]
     Active Substance: SULFASALAZINE
     Route: 048
  370. SULFASALAZINE [Concomitant]
     Active Substance: SULFASALAZINE
     Route: 048
  371. SULFASALAZINE [Concomitant]
     Active Substance: SULFASALAZINE
     Route: 048
  372. SULFASALAZINE [Concomitant]
     Active Substance: SULFASALAZINE
  373. SULFASALAZINE [Concomitant]
     Active Substance: SULFASALAZINE
  374. SULFASALAZINE [Concomitant]
     Active Substance: SULFASALAZINE
     Route: 016
  375. SULFASALAZINE [Concomitant]
     Active Substance: SULFASALAZINE
     Route: 058
  376. SULFASALAZINE [Concomitant]
     Active Substance: SULFASALAZINE
     Route: 048
  377. SULFASALAZINE [Concomitant]
     Active Substance: SULFASALAZINE
     Route: 058
  378. SULFASALAZINE [Concomitant]
     Active Substance: SULFASALAZINE
     Route: 048
  379. SULFASALAZINE [Concomitant]
     Active Substance: SULFASALAZINE
     Route: 048
  380. SULFASALAZINE [Concomitant]
     Active Substance: SULFASALAZINE
     Route: 058
  381. SULFASALAZINE [Concomitant]
     Active Substance: SULFASALAZINE
     Route: 048
  382. SULFASALAZINE [Concomitant]
     Active Substance: SULFASALAZINE
  383. SULFASALAZINE [Concomitant]
     Active Substance: SULFASALAZINE
     Route: 048
  384. TETRACYCLINE HYDROCHLORIDE [Concomitant]
     Active Substance: TETRACYCLINE HYDROCHLORIDE
     Indication: Rheumatoid arthritis
  385. THIAMINE HYDROCHLORIDE [Concomitant]
     Active Substance: THIAMINE HYDROCHLORIDE
     Indication: Product used for unknown indication
  386. TOCILIZUMAB [Concomitant]
     Active Substance: TOCILIZUMAB
     Indication: Rheumatoid arthritis
     Route: 040
  387. TOCILIZUMAB [Concomitant]
     Active Substance: TOCILIZUMAB
     Route: 058
  388. TOCILIZUMAB [Concomitant]
     Active Substance: TOCILIZUMAB
  389. TOCILIZUMAB [Concomitant]
     Active Substance: TOCILIZUMAB
     Route: 040
  390. TOCILIZUMAB [Concomitant]
     Active Substance: TOCILIZUMAB
     Route: 058
  391. TOCILIZUMAB [Concomitant]
     Active Substance: TOCILIZUMAB
     Route: 040
  392. TOCILIZUMAB [Concomitant]
     Active Substance: TOCILIZUMAB
     Route: 016
  393. TOCILIZUMAB [Concomitant]
     Active Substance: TOCILIZUMAB
  394. TOFACITINIB CITRATE [Concomitant]
     Active Substance: TOFACITINIB CITRATE
  395. TOFACITINIB CITRATE [Concomitant]
     Active Substance: TOFACITINIB CITRATE
  396. TOFACITINIB CITRATE [Concomitant]
     Active Substance: TOFACITINIB CITRATE
  397. XELJANZ [Concomitant]
     Active Substance: TOFACITINIB CITRATE
     Indication: Rheumatoid arthritis
  398. XELJANZ [Concomitant]
     Active Substance: TOFACITINIB CITRATE
  399. XELJANZ [Concomitant]
     Active Substance: TOFACITINIB CITRATE
  400. XELJANZ [Concomitant]
     Active Substance: TOFACITINIB CITRATE
  401. XELJANZ [Concomitant]
     Active Substance: TOFACITINIB CITRATE
  402. XELJANZ [Concomitant]
     Active Substance: TOFACITINIB CITRATE
     Route: 048
  403. XELJANZ [Concomitant]
     Active Substance: TOFACITINIB CITRATE

REACTIONS (1)
  - Death [Fatal]
